FAERS Safety Report 15019173 (Version 1)
Quarter: 2018Q2

REPORT INFORMATION
  Report Type: Spontaneous
  Country: US (occurrence: US)
  Receive Date: 20180617
  Receipt Date: 20180617
  Transmission Date: 20180711
  Serious: No
  Sender: FDA-Public Use
  Company Number: US-009507513-1806USA006095

PATIENT
  Sex: Male

DRUGS (1)
  1. PREVYMIS [Suspect]
     Active Substance: LETERMOVIR
     Indication: PROPHYLAXIS

REACTIONS (1)
  - Oedema peripheral [Unknown]
